FAERS Safety Report 5767567-2 (Version None)
Quarter: 2008Q2

REPORT INFORMATION
  Report Type: 
  Country: None (occurrence: None)
  Receive Date: 20080611
  Receipt Date: 20080611
  Transmission Date: 20081010
  Serious: Yes (Hospitalization)
  Sender: FDA-Public Use
  Company Number: None

PATIENT
  Age: 78 Year
  Sex: Male
  Weight: 80.7 kg

DRUGS (1)
  1. LISINOPRIL [Suspect]
     Indication: HYPERTENSION
     Dosage: 40 MG  EVERY DAY PO
     Route: 048
     Dates: start: 20020502, end: 20080522

REACTIONS (4)
  - ANGIOEDEMA [None]
  - RASH [None]
  - SWOLLEN TONGUE [None]
  - URTICARIA [None]
